FAERS Safety Report 9237402 (Version 3)
Quarter: 2013Q3

REPORT INFORMATION
  Report Type: Report from Study
  Country: JP (occurrence: JP)
  Receive Date: 20130417
  Receipt Date: 20130925
  Transmission Date: 20140515
  Serious: Yes (Other)
  Sender: FDA-Public Use
  Company Number: JP-VERTEX PHARMACEUTICALS INC.-2013-004924

PATIENT
  Age: 70 Year
  Sex: Female

DRUGS (19)
  1. VX-950 (TELAPREVIR) [Suspect]
     Indication: CHRONIC HEPATITIS C
     Dosage: 1500 MG, QD
     Route: 048
     Dates: start: 20120706, end: 20120927
  2. REBETOL [Suspect]
     Indication: CHRONIC HEPATITIS C
     Dosage: 800 MG, QD
     Route: 048
     Dates: start: 20120706, end: 20120717
  3. REBETOL [Suspect]
     Dosage: 600 MG, QD
     Route: 048
     Dates: start: 20120718, end: 20120802
  4. REBETOL [Suspect]
     Dosage: 400 MG, QD
     Route: 048
     Dates: start: 20120802, end: 20121004
  5. REBETOL [Suspect]
     Dosage: 200 MG, QD
     Route: 048
     Dates: start: 20121005, end: 20121018
  6. REBETOL [Suspect]
     Dosage: 400 MG, QD
     Route: 048
     Dates: start: 20121019, end: 20121025
  7. REBETOL [Suspect]
     Dosage: 600 MG, QD
     Route: 048
     Dates: start: 20121026, end: 20121108
  8. REBETOL [Suspect]
     Dosage: 600 MG/800 MG, ALTERNATE DAYS
     Route: 048
     Dates: start: 20121109, end: 20121122
  9. REBETOL [Suspect]
     Dosage: 400 MG, QD
     Route: 048
     Dates: start: 20121123, end: 20121220
  10. PEGINTRON [Suspect]
     Indication: CHRONIC HEPATITIS C
     Dosage: 1.5 ?G/KG,QW
     Route: 058
     Dates: start: 20120706, end: 20120720
  11. PEGINTRON [Suspect]
     Dosage: 1 ?G/KG,QW
     Route: 058
     Dates: start: 20120726
  12. PEGINTRON [Suspect]
     Dosage: 0.96 ?G/KG, QW
     Route: 058
     Dates: end: 20121220
  13. DIOVAN [Concomitant]
     Dosage: 80 MG, QD
     Route: 048
  14. FRANDOL [Concomitant]
     Dosage: 40 MG, QD
     Route: 048
  15. CRESTOR [Concomitant]
     Dosage: 2.5 MG, QD
     Route: 048
  16. GASTER D [Concomitant]
     Dosage: 20 MG, QD
     Route: 048
  17. REBAMIPIDE [Concomitant]
     Dosage: 1 DF, PRN
     Route: 048
     Dates: start: 20120709, end: 20120710
  18. FAMOTIDINE [Concomitant]
     Dosage: 20 MG, UNK
     Route: 048
  19. AMLODIN [Concomitant]
     Dosage: 5 MG, QD
     Route: 048

REACTIONS (1)
  - White blood cell count decreased [Recovered/Resolved]
